FAERS Safety Report 15916461 (Version 1)
Quarter: 2019Q1

REPORT INFORMATION
  Report Type: Spontaneous
  Country: US (occurrence: US)
  Receive Date: 20190205
  Receipt Date: 20190205
  Transmission Date: 20190417
  Serious: Yes (Hospitalization)
  Sender: FDA-Public Use
  Company Number: None

PATIENT
  Age: 51 Year
  Sex: Female
  Weight: 71 kg

DRUGS (1)
  1. GANCYCLOVIR [Suspect]
     Active Substance: GANCICLOVIR
     Indication: PRODUCT USED FOR UNKNOWN INDICATION
     Route: 041
     Dates: start: 20190130, end: 20190130

REACTIONS (6)
  - Infusion related reaction [None]
  - Hypoxia [None]
  - Pulmonary congestion [None]
  - Urticaria [None]
  - Tachypnoea [None]
  - Chest discomfort [None]

NARRATIVE: CASE EVENT DATE: 20190130
